FAERS Safety Report 8006719-8 (Version None)
Quarter: 2011Q4

REPORT INFORMATION
  Report Type: 
  Country: None (occurrence: None)
  Receive Date: 20111227
  Receipt Date: 20111216
  Transmission Date: 20120403
  Serious: Yes (Other)
  Sender: FDA-Public Use
  Company Number: CA-JNJFOC-20111207949

PATIENT
  Sex: Female

DRUGS (2)
  1. REMICADE [Suspect]
     Indication: CROHN'S DISEASE
     Route: 042
     Dates: start: 20110926
  2. PENTASA [Concomitant]
     Route: 065

REACTIONS (3)
  - FLUID RETENTION [None]
  - DYSPNOEA [None]
  - ARTHRALGIA [None]
